FAERS Safety Report 7779244-7 (Version None)
Quarter: 2011Q3

REPORT INFORMATION
  Report Type: 
  Country: None (occurrence: None)
  Receive Date: 20110926
  Receipt Date: 20110916
  Transmission Date: 20111222
  Serious: Yes (Other)
  Sender: FDA-Public Use
  Company Number: US-ASTRAZENECA-2008UW19928

PATIENT
  Age: 67 Year
  Sex: Female
  Weight: 68 kg

DRUGS (7)
  1. ATACAND [Suspect]
     Route: 048
  2. FLONASE [Concomitant]
  3. ARIMIDEX [Suspect]
     Route: 048
     Dates: start: 20080910
  4. PREVACID [Concomitant]
  5. ZYRTEC [Concomitant]
  6. VITAMIN TAB [Concomitant]
  7. FISH OIL [Concomitant]

REACTIONS (8)
  - FATIGUE [None]
  - CONSTIPATION [None]
  - ANORECTAL DISCOMFORT [None]
  - DIARRHOEA [None]
  - CHILLS [None]
  - HEADACHE [None]
  - COUGH [None]
  - BREAST CANCER [None]
